FAERS Safety Report 7875639-1 (Version None)
Quarter: 2011Q4

REPORT INFORMATION
  Report Type: 
  Country: None (occurrence: None)
  Receive Date: 20111031
  Receipt Date: 20100414
  Transmission Date: 20120403
  Serious: No
  Sender: FDA-Public Use
  Company Number: US-BAYER-201019863NA

PATIENT
  Age: 90 Year
  Sex: Female

DRUGS (1)
  1. AVELOX [Suspect]
     Indication: PRODUCT USED FOR UNKNOWN INDICATION

REACTIONS (2)
  - VISUAL IMPAIRMENT [None]
  - UNEVALUABLE EVENT [None]
